FAERS Safety Report 13028409 (Version 3)
Quarter: 2017Q1

REPORT INFORMATION
  Report Type: Spontaneous
  Country: US (occurrence: US)
  Receive Date: 20161214
  Receipt Date: 20170308
  Transmission Date: 20170428
  Serious: Yes (Hospitalization, Other)
  Sender: FDA-Public Use
  Company Number: US-BAYER-2016-231480

PATIENT
  Age: 59 Year
  Sex: Male

DRUGS (21)
  1. CIPRO [Suspect]
     Active Substance: CIPROFLOXACIN HYDROCHLORIDE
     Indication: SEPSIS
     Dosage: UNK
     Dates: start: 200811
  2. VANCOMYCIN [Concomitant]
     Active Substance: VANCOMYCIN
     Dosage: UNK
  3. IBUPROFEN. [Concomitant]
     Active Substance: IBUPROFEN
     Dosage: 800 MG, UNK
  4. HEPARIN [Concomitant]
     Active Substance: HEPARIN SODIUM
     Dosage: UNK
  5. MULTIVITAMIN [Concomitant]
     Active Substance: VITAMINS
  6. CIPRO [Suspect]
     Active Substance: CIPROFLOXACIN HYDROCHLORIDE
     Indication: SEPSIS
     Dosage: UNK UNK, BID
     Dates: start: 200901
  7. FERROUS SULFATE. [Concomitant]
     Active Substance: FERROUS SULFATE
     Dosage: 325 MG, UNK
  8. PROCHLORPERAZINE. [Concomitant]
     Active Substance: PROCHLORPERAZINE
  9. TRAZODONE [Concomitant]
     Active Substance: TRAZODONE HYDROCHLORIDE
     Dosage: 50 MG, UNK
  10. CHLORHEXIDINE GLUCONATE. [Concomitant]
     Active Substance: CHLORHEXIDINE GLUCONATE
     Dosage: UNK
  11. DIPHENHYDRAMINE. [Concomitant]
     Active Substance: DIPHENHYDRAMINE
     Dosage: 25 MG, UNK
  12. ERTAPENEM [Concomitant]
     Active Substance: ERTAPENEM
     Dosage: UNK
  13. ASCORBIC ACID. [Concomitant]
     Active Substance: ASCORBIC ACID
     Dosage: 250 MG, UNK
  14. DOCUSATE [Concomitant]
     Active Substance: DOCUSATE
     Dosage: 240 MG, UNK
  15. MAGNESIUM HYDROXIDE. [Concomitant]
     Active Substance: MAGNESIUM HYDROXIDE
  16. PENICILLINE [Concomitant]
     Active Substance: PENICILLIN
     Dosage: UNK
  17. ACETAMINOPHEN. [Concomitant]
     Active Substance: ACETAMINOPHEN
     Dosage: 650 MG, UNK
  18. METOCLOPRAMIDE. [Concomitant]
     Active Substance: METOCLOPRAMIDE
     Dosage: 10 MG, UNK
  19. BISACODYL. [Concomitant]
     Active Substance: BISACODYL
     Dosage: 10 MG, UNK
  20. DALTEPARIN [Concomitant]
     Active Substance: DALTEPARIN
  21. MORPHINE [Concomitant]
     Active Substance: MORPHINE

REACTIONS (18)
  - Hospitalisation [None]
  - Skin injury [None]
  - Anhedonia [None]
  - Neuropathy peripheral [None]
  - Mental disorder [None]
  - Nervous system disorder [None]
  - Neuropathy peripheral [None]
  - Anxiety [None]
  - Pain [None]
  - Hypoaesthesia [None]
  - Post-traumatic stress disorder [None]
  - Injury [None]
  - Musculoskeletal injury [None]
  - Physical disability [None]
  - Cardiovascular disorder [None]
  - Paraesthesia [None]
  - Asthenia [None]
  - Feeling hot [None]

NARRATIVE: CASE EVENT DATE: 200811
